FAERS Safety Report 6906933-6 (Version None)
Quarter: 2010Q3

REPORT INFORMATION
  Report Type: 
  Country: None (occurrence: None)
  Receive Date: 20100804
  Receipt Date: 20100401
  Transmission Date: 20110219
  Serious: Yes (Life-Threatening)
  Sender: FDA-Public Use
  Company Number: PHHY2010NL44509

PATIENT
  Age: 25 Year
  Sex: Female

DRUGS (2)
  1. GLEEVEC [Suspect]
     Dosage: 100 MG, 04 TABLET, PER DAY
  2. SPRYCEL [Concomitant]

REACTIONS (2)
  - EYE OEDEMA [None]
  - FEELING ABNORMAL [None]
